FAERS Safety Report 12591015 (Version 1)
Quarter: 2016Q3

REPORT INFORMATION
  Report Type: Spontaneous
  Country: JP (occurrence: JP)
  Receive Date: 20160726
  Receipt Date: 20160726
  Transmission Date: 20161109
  Serious: Yes (Other)
  Sender: FDA-Public Use
  Company Number: JP-009507513-1210JPN003122

PATIENT

DRUGS (2)
  1. BRIDION [Suspect]
     Active Substance: SUGAMMADEX
     Route: 042
  2. ROPION [Concomitant]
     Active Substance: FLURBIPROFEN AXETIL
     Route: 042

REACTIONS (1)
  - Shock [Unknown]
